FAERS Safety Report 9894672 (Version 1)
Quarter: 2014Q1

REPORT INFORMATION
  Report Type: Spontaneous
  Country: IT (occurrence: IT)
  Receive Date: 20140213
  Receipt Date: 20140213
  Transmission Date: 20141002
  Serious: Yes (Hospitalization)
  Sender: FDA-Public Use
  Company Number: IT-TEVA-462469ISR

PATIENT
  Age: 85 Year
  Sex: Female

DRUGS (5)
  1. FUROSEMIDE [Suspect]
     Indication: PRODUCT USED FOR UNKNOWN INDICATION
     Dates: start: 20130101, end: 20131222
  2. IGROSELES 100MG+25MG COMPRESSE [Suspect]
     Indication: PRODUCT USED FOR UNKNOWN INDICATION
     Dosage: 100MG+25MG
     Dates: start: 20130101, end: 20131222
  3. DIBASE 10.000 UI/ML GOCCE ORALI SOLUZIONE [Concomitant]
     Indication: PRODUCT USED FOR UNKNOWN INDICATION
  4. KCL RETARD 600 MG COMPRESSE A RILASCIO PROLUNGATO [Concomitant]
     Indication: PRODUCT USED FOR UNKNOWN INDICATION
  5. PANTOPRAZOLE SODIUM SESQUIHYDRATE [Concomitant]
     Indication: PRODUCT USED FOR UNKNOWN INDICATION

REACTIONS (1)
  - Renal failure [Recovering/Resolving]
